FAERS Safety Report 7511386-3 (Version None)
Quarter: 2011Q2

REPORT INFORMATION
  Report Type: 
  Country: None (occurrence: None)
  Receive Date: 20110531
  Receipt Date: 20110509
  Transmission Date: 20111010
  Serious: Yes (Hospitalization, Other)
  Sender: FDA-Public Use
  Company Number: US-BAYER-201013309NA

PATIENT
  Age: 21 Year
  Sex: Female
  Weight: 93 kg

DRUGS (16)
  1. PROTONIX [Concomitant]
  2. AMITRIPTYLINE HCL [Concomitant]
  3. HYDROCODONE BITARTRATE [Concomitant]
     Indication: DYSMENORRHOEA
     Route: 065
     Dates: start: 20080501
  4. MULTI-VITAMIN [Concomitant]
     Route: 048
  5. DONNATAL [Concomitant]
  6. OMEPRAZOLE [Concomitant]
  7. CYMBALTA [Concomitant]
     Indication: DEPRESSION
     Route: 048
     Dates: start: 20080501
  8. SUCRALFATE [Concomitant]
  9. ZOLPIDEM [Concomitant]
  10. TRAMADOL HCL [Concomitant]
     Indication: DYSMENORRHOEA
     Route: 065
     Dates: start: 20080501
  11. METRONIDAZOLE [Concomitant]
  12. PROCHLORPERAZINE TAB [Concomitant]
  13. GLUMETZA [Concomitant]
     Indication: PRODUCT USED FOR UNKNOWN INDICATION
     Dosage: UNKNOWN
  14. PROMETHAZINE DM [Concomitant]
  15. YAZ [Suspect]
     Indication: DYSMENORRHOEA
     Route: 048
     Dates: start: 20060601, end: 20090901
  16. TOPIRAMATE [Concomitant]

REACTIONS (8)
  - CHOLELITHIASIS [None]
  - ABDOMINAL PAIN [None]
  - ABDOMINAL DISTENSION [None]
  - CHOLECYSTITIS CHRONIC [None]
  - VOMITING [None]
  - ABDOMINAL PAIN UPPER [None]
  - NAUSEA [None]
  - DIARRHOEA [None]
